FAERS Safety Report 9405240 (Version 1)
Quarter: 2013Q3

REPORT INFORMATION
  Report Type: Spontaneous
  Country: US (occurrence: US)
  Receive Date: 20130717
  Receipt Date: 20130717
  Transmission Date: 20140515
  Serious: Yes (Hospitalization, Other)
  Sender: FDA-Public Use
  Company Number: US-BAXTER-2013BAX027151

PATIENT
  Sex: Male

DRUGS (1)
  1. DIANEAL LOW CALCIUM [Suspect]
     Indication: PERITONEAL DIALYSIS
     Route: 033
     Dates: start: 20130531

REACTIONS (6)
  - Discomfort [Recovered/Resolved]
  - Vomiting [Recovered/Resolved]
  - Device related infection [Unknown]
  - Anxiety [Unknown]
  - Insomnia [Unknown]
  - Medical device complication [Recovered/Resolved]
